FAERS Safety Report 7456777-4 (Version None)
Quarter: 2011Q2

REPORT INFORMATION
  Report Type: 
  Country: None (occurrence: None)
  Receive Date: 20110504
  Receipt Date: 20110427
  Transmission Date: 20111010
  Serious: Yes (Hospitalization)
  Sender: FDA-Public Use
  Company Number: US-BIOGENIDEC-2010BI025196

PATIENT
  Age: 43 Year
  Sex: Female

DRUGS (5)
  1. TYSABRI [Suspect]
     Route: 042
     Dates: start: 20100916, end: 20101112
  2. TYSABRI [Suspect]
     Indication: MULTIPLE SCLEROSIS
     Route: 042
     Dates: start: 20070315, end: 20070808
  3. TYSABRI [Suspect]
     Route: 042
     Dates: start: 20090222, end: 20090311
  4. TYSABRI [Suspect]
     Route: 042
     Dates: start: 20091005, end: 20091102
  5. TYSABRI [Suspect]
     Route: 042
     Dates: start: 20080220, end: 20081222

REACTIONS (4)
  - POOR VENOUS ACCESS [None]
  - CONVULSION [None]
  - GENERAL PHYSICAL HEALTH DETERIORATION [None]
  - MULTIPLE SCLEROSIS RELAPSE [None]
